FAERS Safety Report 11835423 (Version 1)
Quarter: 2015Q4

REPORT INFORMATION
  Report Type: Spontaneous
  Country: US (occurrence: None)
  Receive Date: 20151214
  Receipt Date: 20151214
  Transmission Date: 20160305
  Serious: Yes (Other)
  Sender: FDA-Public Use
  Company Number: None

PATIENT
  Age: 56 Year
  Sex: Male
  Weight: 99.79 kg

DRUGS (5)
  1. VICKS NYQUIL [Suspect]
     Active Substance: ACETAMINOPHEN\DEXTROMETHORPHAN HYDROBROMIDE\DOXYLAMINE SUCCINATE
     Indication: NASOPHARYNGITIS
     Route: 048
     Dates: start: 20121105, end: 20151211
  2. SUGAR REDUCING [Concomitant]
  3. VITAMINS (GENERAL) [Concomitant]
  4. ZYPREXA [Concomitant]
     Active Substance: OLANZAPINE
  5. CLONOPIN [Concomitant]
     Active Substance: CLONAZEPAM

REACTIONS (7)
  - Abasia [None]
  - Speech disorder [None]
  - Type 2 diabetes mellitus [None]
  - Drug dependence [None]
  - Peripheral swelling [None]
  - Memory impairment [None]
  - Economic problem [None]

NARRATIVE: CASE EVENT DATE: 20151212
